FAERS Safety Report 25612197 (Version 5)
Quarter: 2025Q3

REPORT INFORMATION
  Report Type: Report from Study
  Country: US (occurrence: US)
  Receive Date: 20250728
  Receipt Date: 20250904
  Transmission Date: 20251021
  Serious: No
  Sender: SANOFI AVENTIS
  Company Number: US-SA-2025SA215186

PATIENT
  Age: 79 Year
  Sex: Female

DRUGS (2)
  1. DUPIXENT [Suspect]
     Active Substance: DUPILUMAB
     Indication: Chronic obstructive pulmonary disease
     Route: 058
     Dates: start: 20250319
  2. DUPIXENT [Suspect]
     Active Substance: DUPILUMAB
     Dosage: 300 MG, QOW
     Route: 058
     Dates: start: 2025

REACTIONS (5)
  - Injection site pain [Unknown]
  - Exposure via skin contact [Unknown]
  - Accidental exposure to product [Unknown]
  - Incorrect dose administered [Unknown]
  - COVID-19 [Recovering/Resolving]

NARRATIVE: CASE EVENT DATE: 20250601
